FAERS Safety Report 4638011-3 (Version None)
Quarter: 2005Q2

REPORT INFORMATION
  Report Type: 
  Country: None (occurrence: None)
  Receive Date: 20050418
  Receipt Date: 20050407
  Transmission Date: 20051028
  Serious: Yes (Hospitalization)
  Sender: FDA-Public Use
  Company Number: US-GLAXOSMITHKLINE-A0553127A

PATIENT
  Age: 68 Year
  Sex: Female
  Weight: 81 kg

DRUGS (2)
  1. SENSODYNE-F [Suspect]
     Indication: SENSITIVITY OF TEETH
     Dates: start: 19990101
  2. HIGH BLOOD PRESSURE PILL [Concomitant]
     Route: 048

REACTIONS (3)
  - CHEST DISCOMFORT [None]
  - CORONARY ARTERY DISEASE [None]
  - FATIGUE [None]
